FAERS Safety Report 9185020 (Version 2)
Quarter: 2013Q2

REPORT INFORMATION
  Report Type: Spontaneous
  Country: DE (occurrence: DE)
  Receive Date: 20130325
  Receipt Date: 20130527
  Transmission Date: 20140414
  Serious: Yes (Hospitalization)
  Sender: FDA-Public Use
  Company Number: DE-ROCHE-1204269

PATIENT
  Age: 73 Year
  Sex: Male
  Weight: 88 kg

DRUGS (10)
  1. AVASTIN [Suspect]
     Indication: COLON CANCER
     Route: 042
     Dates: start: 20120110, end: 201202
  2. AVASTIN [Suspect]
     Route: 042
     Dates: start: 201202
  3. AVASTIN [Suspect]
     Route: 042
     Dates: end: 20130410
  4. OXALIPLATIN [Concomitant]
     Indication: COLON CANCER
     Route: 065
     Dates: start: 20110725, end: 20111004
  5. OXALIPLATIN [Concomitant]
     Route: 065
     Dates: start: 20111114, end: 20120124
  6. 5-FU [Concomitant]
     Indication: COLON CANCER
     Route: 065
     Dates: start: 20110725, end: 20111004
  7. 5-FU [Concomitant]
     Route: 065
     Dates: start: 20111114, end: 20120124
  8. 5-FU [Concomitant]
     Route: 065
     Dates: end: 201201
  9. FOLINIC ACID [Concomitant]
     Indication: COLON CANCER
     Route: 065
     Dates: start: 20111114, end: 20120124
  10. FOLINIC ACID [Concomitant]
     Route: 065
     Dates: start: 20110725, end: 20111004

REACTIONS (2)
  - Glomerulonephritis membranoproliferative [Recovering/Resolving]
  - Nephrotic syndrome [Recovered/Resolved]
